FAERS Safety Report 12102389 (Version 1)
Quarter: 2016Q1

REPORT INFORMATION
  Report Type: Spontaneous
  Country: FR (occurrence: FR)
  Receive Date: 20160222
  Receipt Date: 20160222
  Transmission Date: 20160526
  Serious: Yes (Hospitalization, Other)
  Sender: FDA-Public Use
  Company Number: FR-ABBVIE-16P-056-1561792-00

PATIENT
  Age: 70 Year
  Sex: Male

DRUGS (4)
  1. VIEKIRAX [Suspect]
     Active Substance: OMBITASVIR\PARITAPREVIR\RITONAVIR
     Indication: HEPATITIS C
     Dosage: 12.5/75/50MG X 2 A DAY
     Route: 048
     Dates: start: 20160107, end: 20160114
  2. CALDINE [Concomitant]
     Indication: HYPERTENSION
     Dates: start: 2015
  3. TAMSULOSINE [Concomitant]
     Active Substance: TAMSULOSIN HYDROCHLORIDE
     Indication: BENIGN PROSTATIC HYPERPLASIA
     Dates: start: 2015
  4. EXVIERA [Suspect]
     Active Substance: DASABUVIR
     Indication: HEPATITIS C
     Route: 048
     Dates: start: 20160107, end: 20160114

REACTIONS (8)
  - Brain natriuretic peptide increased [Recovered/Resolved]
  - Atrioventricular block [Unknown]
  - Tremor [Unknown]
  - Oedema peripheral [Recovered/Resolved]
  - Affect lability [Unknown]
  - Tachycardia [Recovered/Resolved]
  - Dyspnoea [Recovered/Resolved]
  - Muscle spasms [Unknown]

NARRATIVE: CASE EVENT DATE: 201601
